FAERS Safety Report 11786504 (Version 1)
Quarter: 2015Q4

REPORT INFORMATION
  Report Type: Spontaneous
  Country: US (occurrence: US)
  Receive Date: 20151130
  Receipt Date: 20151130
  Transmission Date: 20160305
  Serious: Yes (Hospitalization, Other)
  Sender: FDA-Public Use
  Company Number: US-BIOCOMPATIBLES UK LTD-BTG00520

PATIENT

DRUGS (1)
  1. CROFAB [Suspect]
     Active Substance: CROTALIDAE POLYVALENT IMMUNE FAB (OVINE)
     Indication: SNAKE BITE
     Dosage: UNK
     Dates: start: 20150225

REACTIONS (6)
  - Haemoglobin decreased [None]
  - Platelet count decreased [Unknown]
  - Necrosis [Recovered/Resolved]
  - Haematocrit decreased [Unknown]
  - Swelling [Recovered/Resolved]
  - Lymphocyte count increased [None]

NARRATIVE: CASE EVENT DATE: 201502
